FAERS Safety Report 8138311-9 (Version None)
Quarter: 2012Q1

REPORT INFORMATION
  Report Type: 
  Country: None (occurrence: None)
  Receive Date: 20120215
  Receipt Date: 20120206
  Transmission Date: 20120608
  Serious: Yes (Hospitalization, Other)
  Sender: FDA-Public Use
  Company Number: US-JNJFOC-20120203526

PATIENT
  Sex: Female
  Weight: 86.18 kg

DRUGS (4)
  1. INDOCINE [Concomitant]
     Indication: PSORIATIC ARTHROPATHY
     Route: 048
     Dates: start: 20010101
  2. GLUCOPHAGE [Concomitant]
     Indication: POLYCYSTIC OVARIES
     Route: 048
     Dates: start: 20010101
  3. STELARA [Suspect]
     Indication: PSORIASIS
     Route: 058
     Dates: start: 20111001
  4. STELARA [Suspect]
     Route: 058
     Dates: start: 20100101, end: 20110301

REACTIONS (5)
  - PUSTULAR PSORIASIS [None]
  - THERAPEUTIC RESPONSE DECREASED [None]
  - SINUSITIS [None]
  - EAR INFECTION [None]
  - COUGH [None]
